FAERS Safety Report 8971640 (Version 2)
Quarter: 2013Q1

REPORT INFORMATION
  Report Type: Report from Study
  Country: FR (occurrence: FR)
  Receive Date: 20121217
  Receipt Date: 20130114
  Transmission Date: 20140127
  Serious: Yes (Death)
  Sender: FDA-Public Use
  Company Number: FR-ROCHE-762531

PATIENT
  Age: 71 Year
  Sex: Female

DRUGS (20)
  1. RITUXIMAB [Suspect]
     Indication: B-CELL SMALL LYMPHOCYTIC LYMPHOMA
     Dosage: LAST DOSE PRIOR TO SAE: 14/APR/2010
     Route: 041
  2. CYCLOPHOSPHAMIDE [Suspect]
     Indication: NEOPLASM MALIGNANT
     Route: 002
  3. CYCLOPHOSPHAMIDE [Suspect]
     Dosage: FREQUENCY: ONCE A DAY.
     Route: 002
     Dates: start: 20080320, end: 20080321
  4. CYCLOPHOSPHAMIDE [Suspect]
     Route: 002
     Dates: start: 20080322, end: 20080322
  5. FLUDARABINE [Suspect]
     Indication: CHRONIC LYMPHOCYTIC LEUKAEMIA
     Route: 002
  6. FLUDARABINE [Suspect]
     Dosage: FREQUENCY: ONCE A DAY
     Route: 002
     Dates: start: 20080320, end: 20080322
  7. TAHOR [Concomitant]
     Dosage: DRUG NAME: TAHOR 10
     Route: 065
  8. PENTACARINAT [Concomitant]
     Dosage: DRUG NAME: PENTACARINATE
     Route: 065
  9. ZELITREX [Concomitant]
     Route: 002
  10. EFFEXOR [Concomitant]
  11. PLAVIX [Concomitant]
     Route: 065
  12. TRANXENE [Concomitant]
  13. CORTANCYL [Concomitant]
  14. DUPHALAC [Concomitant]
  15. COTAREG [Concomitant]
     Route: 065
  16. BACTRIM [Concomitant]
  17. ARANESP [Concomitant]
     Route: 065
     Dates: start: 20100915
  18. SOLUPRED (FRANCE) [Concomitant]
     Route: 065
     Dates: start: 20100915
  19. VIDAZA [Concomitant]
     Route: 065
     Dates: start: 20101115, end: 20101120
  20. VIDAZA [Concomitant]
     Route: 065
     Dates: start: 20101213, end: 20101216

REACTIONS (1)
  - Myelodysplastic syndrome [Fatal]
